FAERS Safety Report 9189652 (Version 1)
Quarter: 2013Q1

REPORT INFORMATION
  Report Type: Spontaneous
  Country: US (occurrence: US)
  Receive Date: 20130326
  Receipt Date: 20130326
  Transmission Date: 20140127
  Serious: No
  Sender: FDA-Public Use
  Company Number: US-MYLANLABS-2012S1022422

PATIENT
  Age: 65 Year
  Sex: Male
  Weight: 95.26 kg

DRUGS (17)
  1. FENTANYL TRANSDERMAL SYSTEM [Suspect]
     Indication: BACK PAIN
     Dosage: CHANGED Q72H
     Route: 062
     Dates: start: 20121003, end: 20121024
  2. FENTANYL TRANSDERMAL SYSTEM [Suspect]
     Indication: BACK PAIN
     Dosage: CHANGED Q72H
     Route: 062
     Dates: start: 20121003, end: 20121024
  3. HYDROCODONE BITARTRATE AND ACETAMINOPHEN [Concomitant]
     Dosage: 10/325 UP TO 2 PER DAY
  4. CYMBALTA [Concomitant]
  5. NIASPAN ER [Concomitant]
  6. LIPITOR [Concomitant]
  7. ZETIA [Concomitant]
  8. ASPIRIN [Concomitant]
  9. DHEA [Concomitant]
  10. MELATONIN [Concomitant]
  11. L-TRYPTOPHAN [Concomitant]
  12. CHONDROITIN W/GLUCOSAMINE SULFATE [Concomitant]
     Dosage: 1200MG/1500MG
  13. CALCIUM [Concomitant]
  14. MULTIVITAMIN [Concomitant]
  15. VITAMIN B COMPLEX [Concomitant]
  16. VITAMIN C [Concomitant]
  17. STOOL SOFTENER [Concomitant]
     Dosage: 2 NIGHTLY

REACTIONS (2)
  - Pollakiuria [Recovered/Resolved]
  - Incontinence [Recovered/Resolved]
